FAERS Safety Report 4281591-0 (Version None)
Quarter: 2004Q1

REPORT INFORMATION
  Report Type: 
  Country: None (occurrence: None)
  Receive Date: 20040108
  Receipt Date: 20030618
  Transmission Date: 20041129
  Serious: Yes (Other)
  Sender: FDA-Public Use
  Company Number: HQWYE685119JUN03

PATIENT
  Age: 59 Year
  Sex: Female

DRUGS (1)
  1. PREMPRO [Suspect]
     Dosage: 0.625/2.5 MG DAILY, ORAL
     Route: 048
     Dates: end: 19990101

REACTIONS (1)
  - DEMENTIA [None]
